FAERS Safety Report 5541993-9 (Version None)
Quarter: 2007Q4

REPORT INFORMATION
  Report Type: 
  Country: None (occurrence: None)
  Receive Date: 20071210
  Receipt Date: 20071019
  Transmission Date: 20080405
  Serious: Yes (Other)
  Sender: FDA-Public Use
  Company Number: US-PURDUE-USA_2007_0030198

PATIENT
  Sex: Female

DRUGS (1)
  1. OXYCONTIN [Suspect]
     Indication: PAIN
     Dosage: UNK MG, UNK
     Route: 048
     Dates: start: 20020601

REACTIONS (5)
  - DEPRESSION [None]
  - DRUG DEPENDENCE [None]
  - HEART RATE IRREGULAR [None]
  - INTENTIONAL OVERDOSE [None]
  - PALPITATIONS [None]
